FAERS Safety Report 7444437-5 (Version None)
Quarter: 2011Q2

REPORT INFORMATION
  Report Type: 
  Country: None (occurrence: None)
  Receive Date: 20110429
  Receipt Date: 20110419
  Transmission Date: 20111010
  Serious: Yes (Hospitalization)
  Sender: FDA-Public Use
  Company Number: US-ENDO PHARMACEUTICALS INC.-PRED20110008

PATIENT
  Sex: Female

DRUGS (2)
  1. PREDNISONE TAB [Suspect]
     Dosage: 10 MG
     Route: 048
  2. XOLAIR [Suspect]
     Dosage: UNK

REACTIONS (2)
  - SWELLING [None]
  - PULMONARY EMBOLISM [None]
